FAERS Safety Report 8045775-8 (Version None)
Quarter: 2012Q1

REPORT INFORMATION
  Report Type: 
  Country: None (occurrence: None)
  Receive Date: 20120113
  Receipt Date: 20120111
  Transmission Date: 20120608
  Serious: Yes (Other)
  Sender: FDA-Public Use
  Company Number: PHHY2011BR109238

PATIENT
  Age: 59 Year
  Sex: Female

DRUGS (2)
  1. TRILEPTAL [Suspect]
     Indication: MIGRAINE
     Dosage: 300 MG, BID
     Route: 048
  2. HYDROCHLOROTHIAZIDE [Concomitant]
     Dosage: 25 MG, QD

REACTIONS (3)
  - HYPERTENSION [None]
  - BLOOD PRESSURE DECREASED [None]
  - ASTHMA [None]
